FAERS Safety Report 7635440 (Version 6)
Quarter: 2013Q1

REPORT INFORMATION
  Report Type: Spontaneous
  Country: US (occurrence: US)
  Receive Date: 20101020
  Receipt Date: 20130329
  Transmission Date: 20140127
  Serious: Yes (Hospitalization, Other)
  Sender: FDA-Public Use
  Company Number: US-ROCHE-692599

PATIENT
  Age: 33 None
  Sex: Male
  Weight: 83.9 kg

DRUGS (1)
  1. ACCUTANE [Suspect]
     Indication: ACNE CYSTIC
     Route: 065
     Dates: start: 198906, end: 198910

REACTIONS (10)
  - Crohn^s disease [Unknown]
  - Colitis ulcerative [Unknown]
  - Small intestinal obstruction [Unknown]
  - Gastrointestinal injury [Unknown]
  - Proctitis [Unknown]
  - Anal fistula [Recovering/Resolving]
  - Anal abscess [Unknown]
  - Large intestine polyp [Unknown]
  - Depression [Unknown]
  - Retrograde ejaculation [Unknown]
